FAERS Safety Report 5006550-1 (Version None)
Quarter: 2006Q2

REPORT INFORMATION
  Report Type: 
  Country: None (occurrence: None)
  Receive Date: 20060516
  Receipt Date: 20060502
  Transmission Date: 20061013
  Serious: Yes (Other)
  Sender: FDA-Public Use
  Company Number: 02100-USA-06-0012

PATIENT
  Age: 30 Year
  Sex: Male

DRUGS (1)
  1. CILOSTAZOL [Suspect]
     Indication: VENTRICULAR FIBRILLATION
     Dosage: 200 MG DAILY ORAL
     Route: 048
     Dates: start: 20031001

REACTIONS (5)
  - ATRIAL FIBRILLATION [None]
  - IMPLANTABLE DEFIBRILLATOR MALFUNCTION [None]
  - REFUSAL OF TREATMENT BY PATIENT [None]
  - VENTRICULAR EXTRASYSTOLES [None]
  - VENTRICULAR FIBRILLATION [None]
